FAERS Safety Report 8353070-2 (Version None)
Quarter: 2012Q2

REPORT INFORMATION
  Report Type: 
  Country: None (occurrence: None)
  Receive Date: 20120511
  Receipt Date: 20120508
  Transmission Date: 20120825
  Serious: Yes (Other)
  Sender: FDA-Public Use
  Company Number: US-PFIZER INC-2012113208

PATIENT
  Sex: Female

DRUGS (1)
  1. LYRICA [Suspect]
     Dosage: UNK

REACTIONS (5)
  - ANAPHYLACTIC SHOCK [None]
  - TOOTH DISORDER [None]
  - NASAL CONGESTION [None]
  - THROAT TIGHTNESS [None]
  - DYSPNOEA [None]
